FAERS Safety Report 7235783-9 (Version None)
Quarter: 2011Q1

REPORT INFORMATION
  Report Type: 
  Country: None (occurrence: None)
  Receive Date: 20110111
  Receipt Date: 20101227
  Transmission Date: 20110831
  Serious: Yes (Hospitalization)
  Sender: FDA-Public Use
  Company Number: 2011SP000008

PATIENT
  Age: 11 Year
  Sex: Male

DRUGS (4)
  1. ALLEGRA [Concomitant]
  2. XYZAL [Concomitant]
  3. ALVESCO [Suspect]
     Dosage: 160 UG; QD; INHALATION
     Route: 055
     Dates: start: 20101012
  4. FLUTICASONE PROPIONATE [Concomitant]

REACTIONS (4)
  - CONSTIPATION [None]
  - UPPER RESPIRATORY TRACT INFECTION [None]
  - ASTHMA [None]
  - PYREXIA [None]
